FAERS Safety Report 13986544 (Version 6)
Quarter: 2018Q4

REPORT INFORMATION
  Report Type: Spontaneous
  Country: FI (occurrence: FI)
  Receive Date: 20170919
  Receipt Date: 20181012
  Transmission Date: 20190204
  Serious: Yes (Other)
  Sender: FDA-Public Use
  Company Number: FI-CELGENEUS-FIN-20170902668

PATIENT
  Age: 73 Year
  Sex: Female

DRUGS (13)
  1. BEPANTHEN [Concomitant]
     Indication: PRODUCT USED FOR UNKNOWN INDICATION
     Route: 065
  2. FOSAMAX [Concomitant]
     Active Substance: ALENDRONATE SODIUM
     Indication: OSTEOPOROSIS
     Route: 065
  3. CALCIUM CARBONATE. [Concomitant]
     Active Substance: CALCIUM CARBONATE
     Indication: PRODUCT USED FOR UNKNOWN INDICATION
     Route: 065
  4. LINOLA [Concomitant]
     Indication: PSORIASIS
     Route: 065
  5. ERGOCALCIFEROL. [Concomitant]
     Active Substance: ERGOCALCIFEROL
     Indication: PRODUCT USED FOR UNKNOWN INDICATION
     Route: 065
  6. KEFEXIN [Concomitant]
     Active Substance: CEPHALEXIN
     Indication: SINUSITIS
     Route: 065
  7. KALCIPOS-D [Concomitant]
     Active Substance: CALCIUM CARBONATE\CHOLECALCIFEROL
     Indication: PRODUCT USED FOR UNKNOWN INDICATION
     Route: 065
  8. OTEZLA [Suspect]
     Active Substance: APREMILAST
     Indication: PSORIASIS
     Dosage: 60 MILLIGRAM
     Route: 048
     Dates: start: 2016
  9. ENSTILAR [Concomitant]
     Active Substance: BETAMETHASONE DIPROPIONATE\CALCIPOTRIENE HYDRATE
     Indication: PSORIASIS
     Route: 061
     Dates: start: 20170127, end: 20170202
  10. TAR SHAMPOO [Concomitant]
     Indication: PSORIASIS
     Route: 065
  11. OTEZLA [Suspect]
     Active Substance: APREMILAST
     Route: 048
     Dates: start: 20170203
  12. SIBICORT [Concomitant]
     Indication: ROSACEA
     Route: 065
  13. CORTISONE [Concomitant]
     Active Substance: CORTISONE\HYDROCORTISONE
     Indication: PSORIASIS
     Route: 065

REACTIONS (26)
  - Intraocular haematoma [Not Recovered/Not Resolved]
  - Dysuria [Not Recovered/Not Resolved]
  - Blindness [Not Recovered/Not Resolved]
  - Oral pustule [Unknown]
  - Photophobia [Unknown]
  - Fall [Not Recovered/Not Resolved]
  - Pruritus generalised [Unknown]
  - Osteoporosis [Not Recovered/Not Resolved]
  - Dysphagia [Unknown]
  - Diarrhoea [Not Recovered/Not Resolved]
  - Nausea [Recovered/Resolved]
  - Erythema [Not Recovered/Not Resolved]
  - Nausea [Not Recovered/Not Resolved]
  - Hip fracture [Not Recovered/Not Resolved]
  - Blister [Unknown]
  - Visual impairment [Unknown]
  - Lymphadenopathy [Unknown]
  - Maculopathy [Not Recovered/Not Resolved]
  - Constipation [Not Recovered/Not Resolved]
  - Blindness unilateral [Unknown]
  - Amblyopia [Not Recovered/Not Resolved]
  - Retinal disorder [Not Recovered/Not Resolved]
  - Cataract [Unknown]
  - Skin exfoliation [Not Recovered/Not Resolved]
  - Psoriasis [Not Recovered/Not Resolved]
  - Drug ineffective [Unknown]

NARRATIVE: CASE EVENT DATE: 201701
